FAERS Safety Report 24970387 (Version 1)
Quarter: 2025Q1

REPORT INFORMATION
  Report Type: Spontaneous
  Country: JP (occurrence: JP)
  Receive Date: 20250214
  Receipt Date: 20250214
  Transmission Date: 20250408
  Serious: Yes (Other)
  Sender: MERCK SHARP & DOHME LLC
  Company Number: JP-MSD-2410JPN003614J

PATIENT
  Age: 76 Year
  Sex: Male

DRUGS (1)
  1. KEYTRUDA [Suspect]
     Active Substance: PEMBROLIZUMAB
     Indication: Lung adenocarcinoma stage IV
     Route: 065
     Dates: start: 202405, end: 202407

REACTIONS (3)
  - Malignant neoplasm progression [Unknown]
  - Immune-mediated gastritis [Unknown]
  - Duodenitis [Unknown]

NARRATIVE: CASE EVENT DATE: 20240101
